FAERS Safety Report 6925210-0 (Version None)
Quarter: 2010Q3

REPORT INFORMATION
  Report Type: 
  Country: None (occurrence: None)
  Receive Date: 20100810
  Receipt Date: 20100803
  Transmission Date: 20110219
  Serious: Yes (Hospitalization, Other)
  Sender: FDA-Public Use
  Company Number: WAES 0907USA00672

PATIENT
  Age: 65 Year
  Sex: Female
  Weight: 53.978 kg

DRUGS (35)
  1. CAP VORINOSTAT UNK [Suspect]
     Indication: MULTIPLE MYELOMA
     Dosage: 400 MG/DAILY/PO;400 MG/DAILY/PO; 300 MG/DAILY/PO; 300 MG/DAILY/PO; 300 MG/DAILY/PO
     Route: 048
     Dates: start: 20090521, end: 20090527
  2. CAP VORINOSTAT UNK [Suspect]
     Indication: MULTIPLE MYELOMA
     Dosage: 400 MG/DAILY/PO;400 MG/DAILY/PO; 300 MG/DAILY/PO; 300 MG/DAILY/PO; 300 MG/DAILY/PO
     Route: 048
     Dates: start: 20090604, end: 20090610
  3. CAP VORINOSTAT UNK [Suspect]
     Indication: MULTIPLE MYELOMA
     Dosage: 400 MG/DAILY/PO;400 MG/DAILY/PO; 300 MG/DAILY/PO; 300 MG/DAILY/PO; 300 MG/DAILY/PO
     Route: 048
     Dates: start: 20090624, end: 20090630
  4. CAP VORINOSTAT UNK [Suspect]
     Indication: MULTIPLE MYELOMA
     Dosage: 400 MG/DAILY/PO;400 MG/DAILY/PO; 300 MG/DAILY/PO; 300 MG/DAILY/PO; 300 MG/DAILY/PO
     Route: 048
     Dates: start: 20090720, end: 20090805
  5. CAP VORINOSTAT UNK [Suspect]
     Indication: MULTIPLE MYELOMA
     Dosage: 400 MG/DAILY/PO;400 MG/DAILY/PO; 300 MG/DAILY/PO; 300 MG/DAILY/PO; 300 MG/DAILY/PO
     Route: 048
     Dates: start: 20090817, end: 20090831
  6. LENALIDOMIDE [Suspect]
     Indication: MULTIPLE MYELOMA
     Dosage: 25 MG/DAILY/PO; 20 MG/DAILY/PO; 15 MG/DAILY/PO; 15 MG/DAILY/PO
     Route: 048
     Dates: start: 20090521, end: 20090610
  7. LENALIDOMIDE [Suspect]
     Indication: MULTIPLE MYELOMA
     Dosage: 25 MG/DAILY/PO; 20 MG/DAILY/PO; 15 MG/DAILY/PO; 15 MG/DAILY/PO
     Route: 048
     Dates: start: 20090624, end: 20090701
  8. LENALIDOMIDE [Suspect]
     Indication: MULTIPLE MYELOMA
     Dosage: 25 MG/DAILY/PO; 20 MG/DAILY/PO; 15 MG/DAILY/PO; 15 MG/DAILY/PO
     Route: 048
     Dates: start: 20090720, end: 20090809
  9. LENALIDOMIDE [Suspect]
     Indication: MULTIPLE MYELOMA
     Dosage: 25 MG/DAILY/PO; 20 MG/DAILY/PO; 15 MG/DAILY/PO; 15 MG/DAILY/PO
     Route: 048
     Dates: start: 20090817, end: 20090831
  10. DEXAMETHASONE [Suspect]
     Indication: MULTIPLE MYELOMA
     Dosage: 40 MG/DAILY/PO; 40 MG/DAILY/PO; 40 MG/DAILY/PO; 40 MG/DAILY/PO
     Route: 048
     Dates: start: 20090521, end: 20090611
  11. DEXAMETHASONE [Suspect]
     Indication: MULTIPLE MYELOMA
     Dosage: 40 MG/DAILY/PO; 40 MG/DAILY/PO; 40 MG/DAILY/PO; 40 MG/DAILY/PO
     Route: 048
     Dates: start: 20090624, end: 20090701
  12. DEXAMETHASONE [Suspect]
     Indication: MULTIPLE MYELOMA
     Dosage: 40 MG/DAILY/PO; 40 MG/DAILY/PO; 40 MG/DAILY/PO; 40 MG/DAILY/PO
     Route: 048
     Dates: start: 20090720, end: 20090824
  13. DEXAMETHASONE [Suspect]
     Indication: MULTIPLE MYELOMA
     Dosage: 40 MG/DAILY/PO; 40 MG/DAILY/PO; 40 MG/DAILY/PO; 40 MG/DAILY/PO
     Route: 048
     Dates: start: 20090907, end: 20090907
  14. ATIVAN [Concomitant]
  15. BENEFIBER [Concomitant]
  16. CULTURELLE [Concomitant]
  17. IMODIUM A-D [Concomitant]
  18. NEUROTONIN [Concomitant]
  19. NSI ALPHA LIPOTIC ACID [Concomitant]
  20. PRILOSEC [Concomitant]
  21. SEROQUEL [Concomitant]
  22. TIGAN [Concomitant]
  23. ZOFRAN [Concomitant]
  24. ZOMETA [Concomitant]
  25. ACYCLOVIR [Concomitant]
  26. ASPIRIN [Concomitant]
  27. RED BLOOD CELLS [Concomitant]
  28. FOLIC ACID [Concomitant]
  29. LEVOCARNITINE [Concomitant]
  30. LOPERAMIDE HYDROCHLORIDE [Concomitant]
  31. METOPROLOL TARTRATE [Concomitant]
  32. SIMVASTATIN [Concomitant]
  33. TRIMETHOBENZAMIDE HYDROCHLORIDE [Concomitant]
  34. VITAMIN D [Concomitant]
  35. VITAMINS [Concomitant]

REACTIONS (9)
  - BRADYCARDIA [None]
  - BUNDLE BRANCH BLOCK RIGHT [None]
  - DEHYDRATION [None]
  - ELECTROCARDIOGRAM QT PROLONGED [None]
  - ELECTROCARDIOGRAM ST SEGMENT ABNORMAL [None]
  - GASTROENTERITIS [None]
  - SUPRAVENTRICULAR EXTRASYSTOLES [None]
  - TROPONIN I INCREASED [None]
  - VENTRICULAR EXTRASYSTOLES [None]
